FAERS Safety Report 18963942 (Version 2)
Quarter: 2022Q1

REPORT INFORMATION
  Report Type: Spontaneous
  Country: US (occurrence: US)
  Receive Date: 20210303
  Receipt Date: 20220224
  Transmission Date: 20220423
  Serious: No
  Sender: FDA-Public Use
  Company Number: US-AMNEAL PHARMACEUTICALS-2020-AMRX-00251

PATIENT
  Age: 58 Year
  Sex: Male

DRUGS (1)
  1. RYTARY [Suspect]
     Active Substance: CARBIDOPA\LEVODOPA
     Indication: Parkinson^s disease
     Dosage: UNK, 6 /DAY
     Route: 065
     Dates: start: 201806

REACTIONS (9)
  - Therapeutic response shortened [Unknown]
  - Sluggishness [Unknown]
  - Disturbance in attention [Unknown]
  - Hypokinesia [Unknown]
  - Decreased activity [Recovering/Resolving]
  - Muscle spasms [Recovering/Resolving]
  - Gait disturbance [Recovering/Resolving]
  - Anxiety [Unknown]
  - Headache [Unknown]

NARRATIVE: CASE EVENT DATE: 20200121
